FAERS Safety Report 23576870 (Version 1)
Quarter: 2024Q1

REPORT INFORMATION
  Report Type: Spontaneous
  Country: FR (occurrence: FR)
  Receive Date: 20240228
  Receipt Date: 20240228
  Transmission Date: 20240410
  Serious: Yes (Death)
  Sender: FDA-Public Use
  Company Number: FR-ANIPHARMA-2024-FR-000039

PATIENT
  Age: 99 Year
  Sex: Male
  Weight: 55 kg

DRUGS (6)
  1. CANDESARTAN [Suspect]
     Active Substance: CANDESARTAN
     Indication: Product used for unknown indication
     Dosage: 16 MG DAILY
     Route: 048
     Dates: start: 20240103, end: 20240103
  2. LERCANIDIPINE HYDROCHLORIDE [Suspect]
     Active Substance: LERCANIDIPINE HYDROCHLORIDE
     Dosage: 50 MG DAILY
     Route: 048
     Dates: start: 20240103, end: 20240203
  3. REVLIMID [Suspect]
     Active Substance: LENALIDOMIDE
     Dosage: 1 DF DAILY
     Route: 048
     Dates: start: 20240203, end: 20240203
  4. POTASSIUM CHLORIDE [Suspect]
     Active Substance: POTASSIUM CHLORIDE
     Dosage: 1 DF DAILY
     Route: 048
     Dates: start: 20240203, end: 20240203
  5. VALACYCLOVIR HYDROCHLORIDE [Suspect]
     Active Substance: VALACYCLOVIR HYDROCHLORIDE
     Dosage: 500 MG DAILY
     Route: 048
     Dates: start: 20240203, end: 20240203
  6. TRABECTEDIN [Suspect]
     Active Substance: TRABECTEDIN
     Route: 065

REACTIONS (3)
  - Hypotension [Fatal]
  - Wrong patient received product [Unknown]
  - Sepsis [Fatal]
